FAERS Safety Report 6689195-7 (Version None)
Quarter: 2010Q2

REPORT INFORMATION
  Report Type: 
  Country: None (occurrence: None)
  Receive Date: 20100415
  Receipt Date: 20100409
  Transmission Date: 20101027
  Serious: Yes (Other)
  Sender: FDA-Public Use
  Company Number: A0854535A

PATIENT
  Age: 41 Year
  Sex: Male

DRUGS (1)
  1. UREA PEROXIDE [Suspect]
     Indication: CERUMEN REMOVAL
     Dosage: AURAL
     Route: 001
     Dates: start: 20100409

REACTIONS (3)
  - BALANCE DISORDER [None]
  - DEAFNESS UNILATERAL [None]
  - EAR DISCOMFORT [None]
